FAERS Safety Report 4816596-1 (Version None)
Quarter: 2005Q4

REPORT INFORMATION
  Report Type: 
  Country: None (occurrence: None)
  Receive Date: 20051028
  Receipt Date: 20051017
  Transmission Date: 20060501
  Serious: Yes (Death)
  Sender: FDA-Public Use
  Company Number: 2005144268

PATIENT
  Sex: Female

DRUGS (2)
  1. CELEBREX [Suspect]
     Indication: ILL-DEFINED DISORDER
  2. VIOXX [Suspect]
     Indication: ILL-DEFINED DISORDER

REACTIONS (3)
  - CARDIOVASCULAR DISORDER [None]
  - INJURY [None]
  - ISCHAEMIA [None]
